FAERS Safety Report 10056305 (Version 1)
Quarter: 2014Q2

REPORT INFORMATION
  Report Type: Spontaneous
  Country: US (occurrence: US)
  Receive Date: 20140403
  Receipt Date: 20140403
  Transmission Date: 20141212
  Serious: Yes (Hospitalization, Other)
  Sender: FDA-Public Use
  Company Number: US-BAYER-2014-049141

PATIENT
  Age: 17 Year
  Sex: Female
  Weight: 108.84 kg

DRUGS (9)
  1. YAZ [Suspect]
  2. YASMIN [Suspect]
  3. NAPROSYN [Concomitant]
  4. FLEXERIL [Concomitant]
  5. TORADOL [Concomitant]
     Dosage: 60 MG, UNK
  6. VICODIN [Concomitant]
  7. SEPTRA [Concomitant]
  8. ZANTAC [Concomitant]
  9. ROBAXIN [Concomitant]

REACTIONS (3)
  - Pelvic venous thrombosis [Recovered/Resolved]
  - Thrombophlebitis superficial [None]
  - Cholecystitis chronic [None]
